FAERS Safety Report 13678211 (Version 1)
Quarter: 2017Q2

REPORT INFORMATION
  Report Type: Spontaneous
  Country: US (occurrence: US)
  Receive Date: 20170621
  Receipt Date: 20170621
  Transmission Date: 20170830
  Serious: Yes (Hospitalization)
  Sender: FDA-Public Use
  Company Number: None

PATIENT
  Age: 74 Year
  Sex: Male

DRUGS (1)
  1. ASTAGRAF XL [Suspect]
     Active Substance: TACROLIMUS
     Indication: PROPHYLAXIS AGAINST TRANSPLANT REJECTION
     Route: 048

REACTIONS (6)
  - Pulmonary hypertension [None]
  - Diet noncompliance [None]
  - Respiratory failure [None]
  - Pleural effusion [None]
  - Treatment noncompliance [None]
  - Chronic obstructive pulmonary disease [None]

NARRATIVE: CASE EVENT DATE: 20170609
